FAERS Safety Report 21807620 (Version 2)
Quarter: 2023Q1

REPORT INFORMATION
  Report Type: Spontaneous
  Country: CL (occurrence: CL)
  Receive Date: 20230103
  Receipt Date: 20230201
  Transmission Date: 20230417
  Serious: Yes (Hospitalization)
  Sender: FDA-Public Use
  Company Number: CL-PFIZER INC-PV202200133399

PATIENT
  Age: 56 Year
  Sex: Female

DRUGS (2)
  1. ENBREL [Suspect]
     Active Substance: ETANERCEPT
     Indication: Rheumatoid arthritis
     Dosage: 50 MG, WEEKLY
     Route: 065
     Dates: start: 202207, end: 202212
  2. METHOTREXATE [Concomitant]
     Active Substance: METHOTREXATE
     Dosage: UNK, WEEKLY
     Dates: start: 202201, end: 202212

REACTIONS (5)
  - Acute myocardial infarction [Unknown]
  - Pain [Unknown]
  - Therapeutic product effect incomplete [Unknown]
  - Anaemia [Unknown]
  - Pain [Unknown]

NARRATIVE: CASE EVENT DATE: 20221216
